FAERS Safety Report 5290575-5 (Version None)
Quarter: 2007Q2

REPORT INFORMATION
  Report Type: 
  Country: None (occurrence: None)
  Receive Date: 20070405
  Receipt Date: 20070405
  Transmission Date: 20071010
  Serious: Yes (Life-Threatening, Hospitalization)
  Sender: FDA-Public Use
  Company Number: None

PATIENT
  Age: 65 Year
  Sex: Male
  Weight: 108 kg

DRUGS (12)
  1. MINOXIDIL [Suspect]
     Indication: HYPERTENSION
     Dosage: 2.5 MG PO BID
     Route: 048
  2. TACROLIMUS [Concomitant]
  3. PREDNISONE TAB [Concomitant]
  4. PRAVASTATIN [Concomitant]
  5. CLOPIDOGREL [Concomitant]
  6. M.V.I. [Concomitant]
  7. METOPROLOL SUCCINATE [Concomitant]
  8. FUROSEMIDE [Concomitant]
  9. FLOMAX [Concomitant]
  10. DOXAZOSIN MESYLATE [Concomitant]
  11. CLONIDINE [Concomitant]
  12. ARANESP [Concomitant]

REACTIONS (4)
  - PERICARDIAL EFFUSION [None]
  - PLEURAL EFFUSION [None]
  - PULMONARY CONGESTION [None]
  - PULMONARY VASCULAR DISORDER [None]
